FAERS Safety Report 24183783 (Version 1)
Quarter: 2024Q3

REPORT INFORMATION
  Report Type: Spontaneous
  Country: US (occurrence: US)
  Receive Date: 20240807
  Receipt Date: 20240807
  Transmission Date: 20241016
  Serious: No
  Sender: Haleon PLC
  Company Number: US-HALEON-2190792

PATIENT

DRUGS (1)
  1. LAMISIL AT [Suspect]
     Active Substance: TERBINAFINE HYDROCHLORIDE
     Indication: Product used for unknown indication
     Dosage: EXPDATE:20250731 LAMISIL AT ATHLETES FOOT SPRAY 125ML, CUT SPRAY SOLUTION, CUTANEOUS SPRAY,
     Route: 061

REACTIONS (1)
  - Drug ineffective [Unknown]
